FAERS Safety Report 14025365 (Version 1)
Quarter: 2017Q3

REPORT INFORMATION
  Report Type: Spontaneous
  Country: FR (occurrence: FR)
  Receive Date: 20170929
  Receipt Date: 20170929
  Transmission Date: 20171128
  Serious: Yes (Congenital Anomaly)
  Sender: FDA-Public Use
  Company Number: FR-GLAXOSMITHKLINE-FR2017GSK149290

PATIENT
  Sex: Male
  Weight: 20 kg

DRUGS (2)
  1. DEPAKINE [Suspect]
     Active Substance: VALPROATE SODIUM
     Indication: IDIOPATHIC GENERALISED EPILEPSY
     Dosage: 750 MG, BID
     Route: 064
     Dates: start: 200911, end: 20100708
  2. LAMICTAL [Suspect]
     Active Substance: LAMOTRIGINE
     Indication: IDIOPATHIC GENERALISED EPILEPSY
     Dosage: 100 MG, BID
     Route: 064
     Dates: start: 200911, end: 20100708

REACTIONS (2)
  - Attention deficit/hyperactivity disorder [Recovering/Resolving]
  - Foetal exposure during pregnancy [Unknown]

NARRATIVE: CASE EVENT DATE: 200911
